FAERS Safety Report 25806655 (Version 1)
Quarter: 2025Q3

REPORT INFORMATION
  Report Type: Spontaneous
  Country: US (occurrence: None)
  Receive Date: 20250915
  Receipt Date: 20250915
  Transmission Date: 20251021
  Serious: No
  Sender: FDA-CTU
  Company Number: None

PATIENT
  Sex: Male

DRUGS (2)
  1. SCEMBLIX [Suspect]
     Active Substance: ASCIMINIB HYDROCHLORIDE
     Indication: Philadelphia positive chronic myeloid leukaemia
  2. SCEMBLIX [Suspect]
     Active Substance: ASCIMINIB HYDROCHLORIDE
     Indication: Philadelphia positive chronic myeloid leukaemia

REACTIONS (1)
  - Hospitalisation [None]
